FAERS Safety Report 4590242-7 (Version None)
Quarter: 2005Q1

REPORT INFORMATION
  Report Type: 
  Country: None (occurrence: None)
  Receive Date: 20050224
  Receipt Date: 20050215
  Transmission Date: 20050727
  Serious: Yes (Hospitalization)
  Sender: FDA-Public Use
  Company Number: 200511219US

PATIENT
  Age: 18 Year
  Sex: Male

DRUGS (8)
  1. ANZEMET [Suspect]
     Indication: PROPHYLAXIS OF NAUSEA AND VOMITING
     Dosage: DOSE: 12.5 X 1 DOSE
     Route: 042
     Dates: start: 20050211, end: 20050211
  2. PROPOFOL [Concomitant]
     Dosage: DOSE: UNK
     Route: 042
     Dates: start: 20050211, end: 20050211
  3. ANECTINE [Concomitant]
     Indication: MUSCLE RELAXANT THERAPY
     Dosage: DOSE: UNK
     Dates: start: 20050211, end: 20050211
  4. ULTANE [Concomitant]
     Dosage: DOSE: UNK
     Dates: start: 20050211, end: 20050211
  5. OXYGEN [Concomitant]
     Dosage: DOSE: UNK
     Dates: start: 20050211, end: 20050211
  6. VERSED [Concomitant]
     Dosage: DOSE: UNK
     Dates: start: 20050211, end: 20050211
  7. FENTANYL [Concomitant]
     Dosage: DOSE: UNK
     Dates: start: 20050211, end: 20050211
  8. MARCAINE [Concomitant]
     Indication: PAIN MANAGEMENT
     Dosage: DOSE: UNK
     Dates: start: 20050211, end: 20050211

REACTIONS (3)
  - DYSKINESIA [None]
  - IDIOSYNCRATIC DRUG REACTION [None]
  - POST PROCEDURAL COMPLICATION [None]
